FAERS Safety Report 7689411-9 (Version None)
Quarter: 2011Q3

REPORT INFORMATION
  Report Type: 
  Country: None (occurrence: None)
  Receive Date: 20110817
  Receipt Date: 20110805
  Transmission Date: 20111222
  Serious: Yes (Other)
  Sender: FDA-Public Use
  Company Number: PHHY2011AU67196

PATIENT
  Sex: Female

DRUGS (3)
  1. SANDOSTATIN LAR [Suspect]
     Indication: ACROMEGALY
     Dosage: 30 MG, UNK
     Route: 030
  2. PREDNISOLONE [Concomitant]
     Dosage: UNK UKN, UNK
  3. DOSTINEX [Concomitant]
     Dosage: UNK UKN, UNK
     Dates: start: 20110501

REACTIONS (2)
  - DEPRESSION [None]
  - PAIN IN EXTREMITY [None]
